FAERS Safety Report 5228558-3 (Version None)
Quarter: 2007Q1

REPORT INFORMATION
  Report Type: 
  Country: None (occurrence: None)
  Receive Date: 20070205
  Receipt Date: 20070131
  Transmission Date: 20070707
  Serious: Yes (Life-Threatening, Hospitalization)
  Sender: FDA-Public Use
  Company Number: US-BRISTOL-MYERS SQUIBB COMPANY-13604699

PATIENT
  Age: 53 Year
  Sex: Male

DRUGS (6)
  1. REYATAZ [Suspect]
     Indication: HIV INFECTION
     Route: 048
     Dates: start: 20051101, end: 20061030
  2. MEPRON [Concomitant]
     Route: 048
  3. VALCYTE [Concomitant]
  4. RITONAVIR [Concomitant]
  5. ZOLOFT [Concomitant]
  6. TRUVADA [Concomitant]

REACTIONS (4)
  - EOSINOPHILIA [None]
  - HEPATITIS CHOLESTATIC [None]
  - PYREXIA [None]
  - RASH [None]
